FAERS Safety Report 12977831 (Version 8)
Quarter: 2017Q2

REPORT INFORMATION
  Report Type: Report from Study
  Country: DE (occurrence: DE)
  Receive Date: 20161128
  Receipt Date: 20170602
  Transmission Date: 20170830
  Serious: Yes (Death, Hospitalization, Disabling, Other)
  Sender: FDA-Public Use
  Company Number: PHHY2016DE149279

PATIENT
  Sex: Female
  Weight: 66 kg

DRUGS (10)
  1. NOVAMINSULFON [Concomitant]
     Active Substance: METAMIZOLE
     Indication: SPINAL PAIN
     Dosage: 1500 MG, QD
     Route: 048
     Dates: start: 201605
  2. TAFINLAR [Suspect]
     Active Substance: DABRAFENIB MESYLATE
     Indication: METASTATIC MALIGNANT MELANOMA
     Dosage: 150 MG, BID
     Route: 048
     Dates: start: 20160914, end: 20161227
  3. L-THYROXINE [Concomitant]
     Active Substance: LEVOTHYROXINE
     Indication: PRODUCT USED FOR UNKNOWN INDICATION
     Dosage: 50 UG, QD
     Route: 048
     Dates: start: 2015
  4. TILIDINE [Concomitant]
     Active Substance: TILIDINE
     Indication: SPINAL PAIN
     Dosage: 200 MG, QD
     Route: 048
     Dates: start: 201605
  5. KALINOR RETARD [Concomitant]
     Active Substance: POTASSIUM CHLORIDE
     Indication: HYPOKALAEMIA
     Dosage: UNK UNK, QD
     Route: 048
     Dates: start: 20161006, end: 20161023
  6. PEMBROLIZUMAB. [Suspect]
     Active Substance: PEMBROLIZUMAB
     Indication: METASTATIC MALIGNANT MELANOMA
     Dosage: 130 MG, QMO
     Route: 042
     Dates: start: 20160404, end: 20161227
  7. ASPIRIN. [Concomitant]
     Active Substance: ASPIRIN
     Indication: HYPERTENSION
     Dosage: 100 MG, QD
     Route: 048
     Dates: start: 2015
  8. TRAMETINIB [Suspect]
     Active Substance: TRAMETINIB
     Indication: METASTATIC MALIGNANT MELANOMA
     Dosage: 2 MG, QD
     Route: 048
     Dates: start: 20160914, end: 20161227
  9. ENALAPRIL [Concomitant]
     Active Substance: ENALAPRIL
     Indication: HYPERTENSION
     Dosage: 5 MG, QD
     Route: 048
     Dates: start: 2015
  10. PANTAZOLE [Concomitant]
     Active Substance: PANTOPRAZOLE SODIUM
     Indication: PRODUCT USED FOR UNKNOWN INDICATION
     Dosage: 20 MG, QD
     Route: 048
     Dates: start: 201605

REACTIONS (13)
  - Syncope [Recovered/Resolved]
  - Electrocardiogram ST segment elevation [Recovering/Resolving]
  - Periorbital haematoma [Recovering/Resolving]
  - Malignant neoplasm progression [Fatal]
  - Anaemia [Recovering/Resolving]
  - Pneumonitis [Recovering/Resolving]
  - Cardiac disorder [Unknown]
  - Metastatic malignant melanoma [Fatal]
  - Gastroenteritis [Recovering/Resolving]
  - Laceration [Recovering/Resolving]
  - Pulmonary embolism [Recovering/Resolving]
  - Thoracic vertebral fracture [Recovering/Resolving]
  - Craniocerebral injury [Recovering/Resolving]

NARRATIVE: CASE EVENT DATE: 20161023
